FAERS Safety Report 8470556-0 (Version None)
Quarter: 2012Q2

REPORT INFORMATION
  Report Type: 
  Country: None (occurrence: None)
  Receive Date: 20120627
  Receipt Date: 20120620
  Transmission Date: 20120825
  Serious: Yes (Other)
  Sender: FDA-Public Use
  Company Number: PHHY2012MX053976

PATIENT
  Sex: Male

DRUGS (6)
  1. INVALTA [Concomitant]
     Indication: DEPRESSION
     Dosage: 1 DF, PER DAY
  2. STALEVO 100 [Suspect]
     Indication: PARKINSON'S DISEASE
     Dosage: 2 TABLETS (200/50/12.5 MG) PER DAY
     Route: 048
  3. EXELON [Suspect]
     Dosage: 9.5 MG, PER DAY
     Route: 062
     Dates: start: 20090101
  4. LYRICA [Concomitant]
     Indication: DEPRESSION
     Dosage: 1 DF, PER DAY
     Dates: start: 20120601
  5. EVICSA [Concomitant]
     Dosage: 1 DF,PER DAY
     Dates: start: 20110101
  6. OLMESARTAN MEDOXOMIL [Concomitant]
     Dosage: 1 DF, PER DAY

REACTIONS (2)
  - SPINAL COLUMN INJURY [None]
  - DEPRESSION [None]
